FAERS Safety Report 18534127 (Version 7)
Quarter: 2021Q2

REPORT INFORMATION
  Report Type: Report from Study
  Country: US (occurrence: US)
  Receive Date: 20201123
  Receipt Date: 20210402
  Transmission Date: 20210717
  Serious: Yes (Other)
  Sender: FDA-Public Use
  Company Number: NVSC2020US303151

PATIENT
  Sex: Female

DRUGS (3)
  1. XIIDRA [Suspect]
     Active Substance: LIFITEGRAST
     Indication: PRODUCT USED FOR UNKNOWN INDICATION
     Dosage: UNK
     Route: 047
  2. KISQALI [Suspect]
     Active Substance: RIBOCICLIB
     Indication: BREAST CANCER
     Dosage: 400 MG, QD
     Route: 048
     Dates: start: 20201018
  3. AFINITOR [Suspect]
     Active Substance: EVEROLIMUS
     Indication: PRODUCT USED FOR UNKNOWN INDICATION
     Dosage: UNK
     Route: 065

REACTIONS (12)
  - Neuropathy peripheral [Not Recovered/Not Resolved]
  - Dizziness [Recovered/Resolved]
  - Drug ineffective [Unknown]
  - Psychomotor hyperactivity [Recovered/Resolved]
  - Increased appetite [Recovered/Resolved]
  - Constipation [Recovering/Resolving]
  - Hypoaesthesia [Not Recovered/Not Resolved]
  - Hyperhidrosis [Recovering/Resolving]
  - Stomatitis [Unknown]
  - Tumour marker increased [Unknown]
  - Rash pruritic [Recovering/Resolving]
  - Nausea [Recovered/Resolved]
